FAERS Safety Report 4637926-X (Version None)
Quarter: 2005Q2

REPORT INFORMATION
  Report Type: 
  Country: None (occurrence: None)
  Receive Date: 20050418
  Receipt Date: 20050322
  Transmission Date: 20051028
  Serious: Yes (Hospitalization)
  Sender: FDA-Public Use
  Company Number: JP-ROCHE-399858

PATIENT
  Age: 29 Year
  Sex: Female

DRUGS (4)
  1. TAMIFLU [Suspect]
     Route: 048
     Dates: start: 20050228, end: 20050301
  2. SELBEX [Concomitant]
     Route: 048
     Dates: start: 20050228
  3. MUCODYNE [Concomitant]
     Route: 048
     Dates: start: 20050228
  4. CALONAL [Concomitant]
     Route: 048
     Dates: start: 20050228

REACTIONS (1)
  - HAEMATOCHEZIA [None]
